FAERS Safety Report 24960468 (Version 1)
Quarter: 2025Q1

REPORT INFORMATION
  Report Type: Spontaneous
  Country: CA (occurrence: CA)
  Receive Date: 20250212
  Receipt Date: 20250212
  Transmission Date: 20250409
  Serious: Yes (Hospitalization, Other)
  Sender: Sanaluz
  Company Number: CA-SANALUZ LLC-2025SAL000002

PATIENT
  Age: 32 Year
  Sex: Male

DRUGS (1)
  1. AMPHETAMINE [Suspect]
     Active Substance: AMPHETAMINE
     Indication: Product used for unknown indication
     Route: 065

REACTIONS (3)
  - Cardiogenic shock [Recovering/Resolving]
  - Cardiomyopathy [Recovering/Resolving]
  - Intentional product misuse [Unknown]
